FAERS Safety Report 6405719-9 (Version None)
Quarter: 2009Q4

REPORT INFORMATION
  Report Type: 
  Country: None (occurrence: None)
  Receive Date: 20091019
  Receipt Date: 20091013
  Transmission Date: 20100525
  Serious: Yes (Other)
  Sender: FDA-Public Use
  Company Number: US-WYE-H11577709

PATIENT
  Sex: Female
  Weight: 74.91 kg

DRUGS (2)
  1. PREMPRO [Suspect]
     Indication: HOT FLUSH
     Dosage: 0.3 MG THEN STOPPED, AND THEN RESTARTED WITH 0.625MG FOR 6 WEEKS
     Route: 048
     Dates: end: 20091009
  2. ALPRAZOLAM [Concomitant]
     Dosage: PRN

REACTIONS (2)
  - ALANINE AMINOTRANSFERASE INCREASED [None]
  - VAGINAL HAEMORRHAGE [None]
